FAERS Safety Report 25018149 (Version 1)
Quarter: 2025Q1

REPORT INFORMATION
  Report Type: Spontaneous
  Country: US (occurrence: US)
  Receive Date: 20250227
  Receipt Date: 20250227
  Transmission Date: 20250409
  Serious: No
  Sender: CSL BEHRING
  Company Number: US-BEH-2025196318

PATIENT
  Age: 62 Year
  Sex: Female

DRUGS (22)
  1. HIZENTRA [Suspect]
     Active Substance: HUMAN IMMUNOGLOBULIN G
     Indication: Immunodeficiency common variable
     Dosage: 4GM/20 ML, QW
     Route: 058
     Dates: start: 20230516
  2. AIMOVIG [Concomitant]
     Active Substance: ERENUMAB-AOOE
  3. ALBUTEROL SULFATE [Concomitant]
     Active Substance: ALBUTEROL SULFATE
  4. Azithromycin +Pharma [Concomitant]
  5. BETAMETHASONE DIPROPIONATE [Concomitant]
     Active Substance: BETAMETHASONE DIPROPIONATE
  6. BIMATOPROST [Concomitant]
     Active Substance: BIMATOPROST
  7. BIOTIN [Concomitant]
     Active Substance: BIOTIN
  8. BUDESONIDE [Concomitant]
     Active Substance: BUDESONIDE
  9. EPINEPHRINE [Concomitant]
     Active Substance: EPINEPHRINE
  10. FLUCONAZOLE [Concomitant]
     Active Substance: FLUCONAZOLE
  11. Fluocinolon ac [Concomitant]
  12. FLUTICASONE PROPIONATE\SALMETEROL XINAFOATE [Concomitant]
     Active Substance: FLUTICASONE PROPIONATE\SALMETEROL XINAFOATE
  13. A-HYDROCORT [Concomitant]
     Active Substance: HYDROCORTISONE SODIUM SUCCINATE
  14. HYDROCORTISONE [Concomitant]
     Active Substance: HYDROCORTISONE
  15. METHYLPREDNISOLONE [Concomitant]
     Active Substance: METHYLPREDNISOLONE
  16. PREDNISONE [Concomitant]
     Active Substance: PREDNISONE
  17. RESTASIS [Concomitant]
     Active Substance: CYCLOSPORINE
  18. TACROLIMUS [Concomitant]
     Active Substance: TACROLIMUS
  19. TERCONAZOLE [Concomitant]
     Active Substance: TERCONAZOLE
  20. TERCONAZOLE [Concomitant]
     Active Substance: TERCONAZOLE
  21. CLOBETASOL [Concomitant]
     Active Substance: CLOBETASOL
  22. PROCTO-MED HC [Concomitant]
     Active Substance: HYDROCORTISONE

REACTIONS (2)
  - Illness [Not Recovered/Not Resolved]
  - General physical health deterioration [Not Recovered/Not Resolved]

NARRATIVE: CASE EVENT DATE: 20250209
